FAERS Safety Report 7115214-X (Version None)
Quarter: 2010Q4

REPORT INFORMATION
  Report Type: 
  Country: None (occurrence: None)
  Receive Date: 20101122
  Receipt Date: 20101112
  Transmission Date: 20110411
  Serious: Yes (Death, Hospitalization, Other)
  Sender: FDA-Public Use
  Company Number: PHHY2010DE75842

PATIENT
  Sex: Female
  Weight: 72 kg

DRUGS (14)
  1. ALISKIREN ALI+ [Suspect]
     Indication: HYPERTENSION
     Dosage: 150 MG/D
     Dates: start: 20081210
  2. VALSARTAN [Suspect]
     Dosage: 160 MG/D
     Dates: start: 20090505
  3. ACE INHIBITOR NOS [Concomitant]
  4. BETA BLOCKING AGENTS [Concomitant]
  5. DIURETICS [Concomitant]
  6. ANTIPLATELET (NSAR) [Concomitant]
  7. ORAL ANTIDIABETICS [Concomitant]
  8. BISOPROLOL FUMARATE [Concomitant]
     Indication: HYPERTENSION
     Dosage: UNK
     Dates: start: 20090505
  9. METOHEXAL [Concomitant]
     Dosage: UNK
     Dates: start: 20090106
  10. TORASEMIDE [Concomitant]
     Indication: HYPERTENSION
     Dosage: UNK
     Dates: start: 20090106
  11. ASPIRIN [Concomitant]
     Dosage: UNK
     Dates: start: 20090629
  12. DIGITOXIN [Concomitant]
     Indication: CARDIAC FAILURE
     Dosage: UNK
     Dates: start: 20090108
  13. FALITHROM [Concomitant]
     Indication: ARRHYTHMIA
     Dosage: UNK
     Dates: start: 20090106
  14. METFORMIN HCL [Concomitant]
     Indication: DIABETES MELLITUS
     Dosage: UNK
     Dates: start: 20090108

REACTIONS (7)
  - BLOOD CREATININE INCREASED [None]
  - BLOOD GLUCOSE INCREASED [None]
  - BRADYARRHYTHMIA [None]
  - CORONARY ARTERY INSUFFICIENCY [None]
  - IMPLANTABLE DEFIBRILLATOR INSERTION [None]
  - ISCHAEMIC CARDIOMYOPATHY [None]
  - RENAL FAILURE CHRONIC [None]
